FAERS Safety Report 23527700 (Version 1)
Quarter: 2024Q1

REPORT INFORMATION
  Report Type: Spontaneous
  Country: US (occurrence: None)
  Receive Date: 20240215
  Receipt Date: 20240215
  Transmission Date: 20240409
  Serious: No
  Sender: FDA-Public Use
  Company Number: None

PATIENT
  Age: 71 Year
  Sex: Male

DRUGS (1)
  1. BREMELANOTIDE [Suspect]
     Active Substance: BREMELANOTIDE
     Dosage: OTHER FREQUENCY : 8 TIMES MONTHLY;?
     Route: 058

REACTIONS (5)
  - Abdominal pain [None]
  - Arthralgia [None]
  - Arthralgia [None]
  - Arthralgia [None]
  - Gait disturbance [None]

NARRATIVE: CASE EVENT DATE: 20240214
